FAERS Safety Report 5619827-3 (Version None)
Quarter: 2008Q1

REPORT INFORMATION
  Report Type: 
  Country: None (occurrence: None)
  Receive Date: 20080208
  Receipt Date: 20080128
  Transmission Date: 20080703
  Serious: Yes (Other)
  Sender: FDA-Public Use
  Company Number: PHBS2008DK01461

PATIENT
  Age: 23 Year
  Sex: Female

DRUGS (2)
  1. GLEEVEC [Suspect]
     Indication: CHRONIC LEUKAEMIA
     Dosage: UNK, UNK
     Route: 048
     Dates: start: 20050405, end: 20070401
  2. PEG-INTRON [Suspect]
     Indication: CHRONIC LEUKAEMIA
     Dosage: 50 UG, QW
     Route: 030
     Dates: start: 20050407

REACTIONS (6)
  - ABORTION INDUCED [None]
  - CONGENITAL BLADDER ANOMALY [None]
  - CONGENITAL HYDRONEPHROSIS [None]
  - DRUG EXPOSURE DURING PREGNANCY [None]
  - DRUG INTERACTION [None]
  - URETHRAL VALVES [None]
